FAERS Safety Report 22917703 (Version 6)
Quarter: 2024Q2

REPORT INFORMATION
  Report Type: Other
  Country: US (occurrence: US)
  Receive Date: 20230907
  Receipt Date: 20240523
  Transmission Date: 20240715
  Serious: Yes (Other)
  Sender: FDA-Public Use
  Company Number: US-TRAVERE-2023TVT00213

PATIENT
  Age: 57 Year
  Sex: Female
  Weight: 83.91 kg

DRUGS (8)
  1. FILSPARI [Suspect]
     Active Substance: SPARSENTAN
     Indication: IgA nephropathy
     Route: 048
     Dates: start: 20230421
  2. FILSPARI [Suspect]
     Active Substance: SPARSENTAN
     Route: 048
     Dates: start: 20230608
  3. FILSPARI [Suspect]
     Active Substance: SPARSENTAN
     Route: 048
     Dates: start: 20230525
  4. MODERNA COVID-19 VACCINE [Concomitant]
     Active Substance: ELASOMERAN
  5. ATORVASTATIN CALCIUM [Concomitant]
     Active Substance: ATORVASTATIN CALCIUM
  6. FARXIGA [Concomitant]
     Active Substance: DAPAGLIFLOZIN PROPANEDIOL
  7. ATORVASTATIN [Concomitant]
     Active Substance: ATORVASTATIN
  8. TARPEYO [Concomitant]
     Active Substance: BUDESONIDE

REACTIONS (11)
  - Tunnel vision [Recovered/Resolved]
  - Flushing [Recovered/Resolved]
  - Hypoacusis [Recovered/Resolved]
  - Urine abnormality [Unknown]
  - Nasopharyngitis [Unknown]
  - Blood urine present [Unknown]
  - Joint swelling [None]
  - Renal disorder [Unknown]
  - Ear discomfort [Unknown]
  - Rhinorrhoea [Unknown]
  - Sinusitis [Unknown]

NARRATIVE: CASE EVENT DATE: 20230709
